FAERS Safety Report 7809226-8 (Version None)
Quarter: 2011Q4

REPORT INFORMATION
  Report Type: 
  Country: None (occurrence: None)
  Receive Date: 20111012
  Receipt Date: 20111007
  Transmission Date: 20120403
  Serious: Yes (Other)
  Sender: FDA-Public Use
  Company Number: TR-PFIZER INC-2011236545

PATIENT
  Age: 40 Year
  Sex: Female

DRUGS (2)
  1. VALPROIC ACID [Interacting]
     Indication: SCHIZOAFFECTIVE DISORDER
     Dosage: 500 MG/DAY
     Dates: start: 20090101
  2. ZIPRASIDONE HCL [Suspect]
     Indication: SCHIZOAFFECTIVE DISORDER
     Dosage: 80 MG/DAY
     Dates: start: 20090101

REACTIONS (2)
  - DRUG INTERACTION [None]
  - DYSTONIA [None]
